FAERS Safety Report 6219190-3 (Version None)
Quarter: 2009Q2

REPORT INFORMATION
  Report Type: 
  Country: None (occurrence: None)
  Receive Date: 20090609
  Receipt Date: 20090602
  Transmission Date: 20091009
  Serious: Yes (Other)
  Sender: FDA-Public Use
  Company Number: US-RANBAXY-2009US-23217

PATIENT

DRUGS (2)
  1. ISOTRETINOIN [Suspect]
     Indication: DRUG USE FOR UNKNOWN INDICATION
     Dosage: 20 MG, 2QAM/1QPM
     Route: 048
     Dates: start: 20090121, end: 20090216
  2. ISOTRETINOIN [Suspect]
     Dosage: 20 MG, UNK
     Route: 048
     Dates: start: 20071214

REACTIONS (2)
  - PREGNANCY [None]
  - RASH [None]
